FAERS Safety Report 9206517 (Version 1)
Quarter: 2013Q2

REPORT INFORMATION
  Report Type: Spontaneous
  Country: BE (occurrence: None)
  Receive Date: 20130401
  Receipt Date: 20130401
  Transmission Date: 20140414
  Serious: Yes (Life-Threatening)
  Sender: FDA-Public Use
  Company Number: 2013-05588

PATIENT
  Age: 22 Year
  Sex: Female

DRUGS (2)
  1. PACLITAXEL (PACLITAXEL) [Suspect]
     Indication: MALIGNANT PERITONEAL NEOPLASM
     Dosage: 175 NG/M2 EVERY THIRD WEEK, IV DRIP
     Dates: start: 20130130, end: 20130130
  2. PALONOSETRON (PALONOSETRON) [Concomitant]

REACTIONS (10)
  - Oxygen saturation decreased [None]
  - Cold sweat [None]
  - Hyperhidrosis [None]
  - Hypersensitivity [None]
  - Dyspnoea [None]
  - Nausea [None]
  - Chest pain [None]
  - Flushing [None]
  - Hypotension [None]
  - Tachycardia [None]
